FAERS Safety Report 25036723 (Version 2)
Quarter: 2025Q2

REPORT INFORMATION
  Report Type: Report from Study
  Country: JP (occurrence: JP)
  Receive Date: 20250304
  Receipt Date: 20250508
  Transmission Date: 20250717
  Serious: Yes (Other)
  Sender: GILEAD
  Company Number: JP-GILEAD-2025-0705667

PATIENT

DRUGS (5)
  1. AXICABTAGENE CILOLEUCEL [Suspect]
     Active Substance: AXICABTAGENE CILOLEUCEL
     Indication: B-cell lymphoma
     Route: 065
  2. FLUDARABINE PHOSPHATE [Suspect]
     Active Substance: FLUDARABINE PHOSPHATE
     Indication: Lymphodepletion
     Route: 065
  3. FLUDARABINE PHOSPHATE [Suspect]
     Active Substance: FLUDARABINE PHOSPHATE
     Indication: Chemotherapy
  4. CYCLOPHOSPHAMIDE [Suspect]
     Active Substance: CYCLOPHOSPHAMIDE
     Indication: Lymphodepletion
     Route: 065
  5. CYCLOPHOSPHAMIDE [Suspect]
     Active Substance: CYCLOPHOSPHAMIDE
     Indication: Chemotherapy

REACTIONS (1)
  - B-cell lymphoma [Unknown]
